FAERS Safety Report 9157367 (Version 1)
Quarter: 2013Q1

REPORT INFORMATION
  Report Type: Spontaneous
  Country: US (occurrence: None)
  Receive Date: 20130308
  Receipt Date: 20130308
  Transmission Date: 20140127
  Serious: Yes (Hospitalization, Disabling)
  Sender: FDA-Public Use
  Company Number: None

PATIENT
  Age: 55 Year
  Sex: Female

DRUGS (1)
  1. FLECAINIDE [Suspect]
     Dosage: 1 PILL A DAY
     Dates: start: 201202, end: 201208

REACTIONS (1)
  - Blindness [None]
